FAERS Safety Report 21763205 (Version 1)
Quarter: 2022Q4

REPORT INFORMATION
  Report Type: Spontaneous
  Country: US (occurrence: None)
  Receive Date: 20221221
  Receipt Date: 20221221
  Transmission Date: 20230113
  Serious: Yes (Hospitalization)
  Sender: FDA-Public Use
  Company Number: None

PATIENT
  Sex: Male
  Weight: 74.9 kg

DRUGS (3)
  1. FILGRASTIM [Suspect]
     Active Substance: FILGRASTIM
     Dosage: OTHER QUANTITY : 78 MILLION IU;?FREQUENCY : TWICE A DAY;?
     Dates: end: 20220614
  2. IFOSFAMIDE [Suspect]
     Active Substance: IFOSFAMIDE
     Dates: end: 20220622
  3. TAXOL [Suspect]
     Active Substance: PACLITAXEL
     Dates: end: 20220620

REACTIONS (4)
  - Febrile neutropenia [None]
  - Raoultella ornithinolytica infection [None]
  - Stem cell therapy [None]
  - Haemoglobin decreased [None]

NARRATIVE: CASE EVENT DATE: 20220706
